FAERS Safety Report 6556438-X (Version None)
Quarter: 2010Q1

REPORT INFORMATION
  Report Type: 
  Country: None (occurrence: None)
  Receive Date: 20100128
  Receipt Date: 20100125
  Transmission Date: 20100710
  Serious: Yes (Life-Threatening)
  Sender: FDA-Public Use
  Company Number: B0628856A

PATIENT
  Sex: Male

DRUGS (4)
  1. AUGMENTIN [Suspect]
     Indication: DRUG USE FOR UNKNOWN INDICATION
     Route: 065
     Dates: start: 20090201, end: 20090201
  2. DILTIAZEM LP [Concomitant]
     Dosage: 300MG PER DAY
     Route: 065
  3. ZESTRIL [Concomitant]
     Dosage: 20MG PER DAY
     Route: 065
  4. KARDEGIC [Concomitant]
     Dosage: 160MG PER DAY
     Route: 065

REACTIONS (6)
  - ANAPHYLACTIC SHOCK [None]
  - CIRCULATORY COLLAPSE [None]
  - DYSPNOEA [None]
  - FACE OEDEMA [None]
  - MEDICATION ERROR [None]
  - PRURITUS [None]
